FAERS Safety Report 7792595-5 (Version None)
Quarter: 2011Q4

REPORT INFORMATION
  Report Type: 
  Country: None (occurrence: None)
  Receive Date: 20111003
  Receipt Date: 20110927
  Transmission Date: 20120403
  Serious: Yes (Other)
  Sender: FDA-Public Use
  Company Number: US-PFIZER INC-2011231343

PATIENT
  Sex: Female
  Weight: 99.773 kg

DRUGS (12)
  1. ZOLOFT [Suspect]
     Indication: BIPOLAR DISORDER
  2. OXYGEN [Concomitant]
     Dosage: UNK
  3. CLONAZEPAM [Concomitant]
     Indication: DEPRESSION
  4. FAMOTIDINE [Concomitant]
     Indication: ABDOMINAL DISCOMFORT
     Dosage: 20 MG, 2X/DAY
     Route: 048
  5. BENICAR HCT [Concomitant]
     Indication: HYPERTENSION
     Dosage: 40/25MG,DAILY
     Route: 048
  6. ZOLOFT [Suspect]
     Indication: ANXIETY
  7. ZOLOFT [Suspect]
     Indication: HYPERTENSION
  8. METOPROLOL SUCCINATE [Concomitant]
     Indication: CARDIAC DISORDER
     Dosage: 50 MG, DAILY
     Route: 048
  9. CLONAZEPAM [Concomitant]
     Indication: ANXIETY
     Dosage: 0.5 MG, 2X/DAY
     Route: 048
  10. ADVAIR DISKUS 100/50 [Concomitant]
     Indication: CHRONIC OBSTRUCTIVE PULMONARY DISEASE
     Dosage: 250/50MCG, 2X/DAY
     Route: 055
  11. AZITHROMYCIN [Concomitant]
     Indication: SLEEP APNOEA SYNDROME
     Dosage: UNK
     Route: 048
  12. ZOLOFT [Suspect]
     Indication: DEPRESSION
     Dosage: 60 MG, 2X/DAY
     Route: 048
     Dates: start: 20080101

REACTIONS (1)
  - DIABETES MELLITUS [None]
